FAERS Safety Report 6076228-4 (Version None)
Quarter: 2009Q1

REPORT INFORMATION
  Report Type: 
  Country: None (occurrence: None)
  Receive Date: 20090212
  Receipt Date: 20090204
  Transmission Date: 20090719
  Serious: Yes (Death, Hospitalization)
  Sender: FDA-Public Use
  Company Number: AU-ROCHE-608226

PATIENT
  Sex: Female

DRUGS (2)
  1. CAPECITABINE [Suspect]
     Indication: BREAST CANCER
     Dosage: FREQUENCY: 2/D
     Route: 048
     Dates: start: 20081004
  2. BLINDED ENZASTAURIN [Suspect]
     Indication: BREAST CANCER
     Dosage: FREQUENCY:4 D/F DAILY
     Route: 048
     Dates: start: 20081004

REACTIONS (2)
  - PERICARDIAL EFFUSION [None]
  - PULMONARY EMBOLISM [None]
